FAERS Safety Report 15406302 (Version 1)
Quarter: 2018Q4

REPORT INFORMATION
  Report Type: Report from Study
  Country: IT (occurrence: IT)
  Receive Date: 20180920
  Receipt Date: 20180920
  Transmission Date: 20190204
  Serious: Yes (Hospitalization)
  Sender: FDA-Public Use
  Company Number: IT-BAYER-2018-172078

PATIENT
  Age: 84 Year
  Sex: Male

DRUGS (11)
  1. GABAPENTIN. [Concomitant]
     Active Substance: GABAPENTIN
  2. AVODART [Concomitant]
     Active Substance: DUTASTERIDE
  3. CARDIOASPIRIN 100 MG GASTRORESISTANT TABLETS [Suspect]
     Active Substance: ASPIRIN
     Dosage: UNK
  4. METFORMIN [Suspect]
     Active Substance: METFORMIN HYDROCHLORIDE
     Indication: DIABETES MELLITUS
  5. CLEXANE [Suspect]
     Active Substance: ENOXAPARIN SODIUM
     Dosage: UNK
  6. TAMSULOSIN HYDROCHLORIDE. [Concomitant]
     Active Substance: TAMSULOSIN HYDROCHLORIDE
     Dosage: UNK
  7. CARDIRENE [Concomitant]
     Active Substance: ASPIRIN DL-LYSINE
  8. INSULIN [Concomitant]
     Active Substance: INSULIN NOS
  9. AMIODARONE [Concomitant]
     Active Substance: AMIODARONE
  10. RANEXA [Concomitant]
     Active Substance: RANOLAZINE
     Dosage: UNK
  11. SPIRIVA [Concomitant]
     Active Substance: TIOTROPIUM BROMIDE MONOHYDRATE

REACTIONS (4)
  - Gastrointestinal ulcer haemorrhage [Recovering/Resolving]
  - Abdominal pain [Recovering/Resolving]
  - Lactic acidosis [Recovering/Resolving]
  - Haematemesis [Recovering/Resolving]

NARRATIVE: CASE EVENT DATE: 20180612
